FAERS Safety Report 21968459 (Version 3)
Quarter: 2023Q1

REPORT INFORMATION
  Report Type: Spontaneous
  Country: RU (occurrence: RU)
  Receive Date: 20230208
  Receipt Date: 20230221
  Transmission Date: 20230418
  Serious: Yes (Other)
  Sender: FDA-Public Use
  Company Number: RU-002147023-NVSC2023RU027033

PATIENT
  Age: 4 Year
  Sex: Female

DRUGS (3)
  1. TRAMETINIB [Suspect]
     Active Substance: TRAMETINIB
     Indication: Chiasma syndrome
     Dosage: 0.032 MG/KG, QD
     Route: 065
  2. TRAMETINIB [Suspect]
     Active Substance: TRAMETINIB
     Indication: Diencephalic syndrome
  3. TRAMETINIB [Suspect]
     Active Substance: TRAMETINIB
     Indication: Astrocytoma

REACTIONS (4)
  - Enterocolitis [Unknown]
  - Mucosal inflammation [Unknown]
  - Skin toxicity [Unknown]
  - Therapy partial responder [Unknown]
